FAERS Safety Report 6317197-9 (Version None)
Quarter: 2009Q3

REPORT INFORMATION
  Report Type: 
  Country: None (occurrence: None)
  Receive Date: 20090819
  Receipt Date: 20090809
  Transmission Date: 20100115
  Serious: Yes (Hospitalization, Disabling)
  Sender: FDA-Public Use
  Company Number: SP02007

PATIENT
  Age: 58 Year
  Sex: Female
  Weight: 99.7913 kg

DRUGS (12)
  1. OSMOPREP [Suspect]
     Indication: COLONOSCOPY
     Dosage: ORAL
     Route: 048
     Dates: start: 20070919, end: 20070920
  2. HYDROCHLOROTHIAZIDE [Concomitant]
  3. IBUPROFEN [Concomitant]
  4. URSO 250 [Concomitant]
  5. NEXIUM [Concomitant]
  6. ACTIGALL [Concomitant]
  7. DETROL [Concomitant]
  8. LIPITOR [Concomitant]
  9. SYNTHROID [Concomitant]
  10. PROZAC [Concomitant]
  11. PREMARIN [Concomitant]
  12. CLARINEX [Concomitant]

REACTIONS (3)
  - NEPHROCALCINOSIS [None]
  - RENAL FAILURE [None]
  - TUBULOINTERSTITIAL NEPHRITIS [None]
